FAERS Safety Report 5094328-2 (Version None)
Quarter: 2006Q3

REPORT INFORMATION
  Report Type: 
  Country: None (occurrence: None)
  Receive Date: 20060830
  Receipt Date: 20060830
  Transmission Date: 20061208
  Serious: Yes (Disabling, Other)
  Sender: FDA-Public Use
  Company Number: None

PATIENT
  Age: 51 Year
  Sex: Male
  Weight: 99.7913 kg

DRUGS (2)
  1. LEVAQUIN [Suspect]
     Indication: DRUG INEFFECTIVE
     Dosage: TABLET 2 X A DAY
     Dates: start: 20060401, end: 20060415
  2. LEVAQUIN [Suspect]
     Indication: SINUSITIS
     Dosage: TABLET 2 X A DAY
     Dates: start: 20060401, end: 20060415

REACTIONS (12)
  - ARTHRALGIA [None]
  - BURNING SENSATION [None]
  - DECREASED ACTIVITY [None]
  - GRIP STRENGTH DECREASED [None]
  - HYPOAESTHESIA [None]
  - HYPOAESTHESIA ORAL [None]
  - MUSCLE TWITCHING [None]
  - MUSCULOSKELETAL PAIN [None]
  - PAIN IN EXTREMITY [None]
  - PARAESTHESIA ORAL [None]
  - SWELLING FACE [None]
  - TENDON DISORDER [None]
